FAERS Safety Report 16938906 (Version 1)
Quarter: 2019Q4

REPORT INFORMATION
  Report Type: Spontaneous
  Country: US (occurrence: US)
  Receive Date: 20190828
  Receipt Date: 20190828
  Transmission Date: 20200122
  Serious: No
  Sender: FDA-Public Use
  Company Number: None

PATIENT
  Age: 62 Year
  Sex: Male

DRUGS (2)
  1. TOBRAMYCIN NEB 300MG/5ML [Suspect]
     Active Substance: TOBRAMYCIN
     Route: 045
     Dates: start: 2018
  2. PULMOZYME [Concomitant]
     Active Substance: DORNASE ALFA

REACTIONS (1)
  - Off label use [None]

NARRATIVE: CASE EVENT DATE: 20180601
